FAERS Safety Report 16011598 (Version 1)
Quarter: 2019Q1

REPORT INFORMATION
  Report Type: Spontaneous
  Country: US (occurrence: US)
  Receive Date: 20190227
  Receipt Date: 20190227
  Transmission Date: 20190418
  Serious: No
  Sender: FDA-Public Use
  Company Number: US-PFIZER INC-2019073163

PATIENT
  Age: 73 Year
  Sex: Female
  Weight: 80.74 kg

DRUGS (2)
  1. CHANTIX [Suspect]
     Active Substance: VARENICLINE TARTRATE
     Indication: SMOKING CESSATION THERAPY
     Dosage: 0.5 MG, 1X/DAY (FIRST THREE DAYS ONCE A DAY, THEN TWICE A DAY)
     Route: 048
     Dates: start: 20190130, end: 20190201
  2. CHANTIX [Suspect]
     Active Substance: VARENICLINE TARTRATE
     Dosage: 0.5 MG, 2X/DAY (FIRST THREE DAYS ONCE A DAY, THEN TWICE A DAY)
     Route: 048
     Dates: start: 20190202

REACTIONS (6)
  - Pollakiuria [Not Recovered/Not Resolved]
  - Insomnia [Unknown]
  - Nausea [Recovering/Resolving]
  - Dizziness [Recovering/Resolving]
  - Weight fluctuation [Unknown]
  - Hunger [Recovering/Resolving]

NARRATIVE: CASE EVENT DATE: 2019
